FAERS Safety Report 10465632 (Version 2)
Quarter: 2014Q3

REPORT INFORMATION
  Report Type: Spontaneous
  Country: FR (occurrence: FR)
  Receive Date: 20140919
  Receipt Date: 20140919
  Transmission Date: 20150326
  Serious: Yes (Hospitalization)
  Sender: FDA-Public Use
  Company Number: FR-GE HEALTHCARE MEDICAL DIAGNOSTICS-OMPQ-NO-0705S-0260

PATIENT
  Age: 70 Year
  Sex: Female

DRUGS (10)
  1. KARDEGIC [Concomitant]
     Active Substance: ASPIRIN LYSINE
  2. ATACAND [Concomitant]
     Active Substance: CANDESARTAN CILEXETIL
  3. FUROSEMIDE. [Concomitant]
     Active Substance: FUROSEMIDE
  4. CARDENSIEL [Concomitant]
     Active Substance: BISOPROLOL FUMARATE
  5. ZOCOR [Concomitant]
     Active Substance: SIMVASTATIN
  6. OMNIPAQUE [Suspect]
     Active Substance: IOHEXOL
     Indication: DIAGNOSTIC PROCEDURE
  7. ALLOPURINOL. [Concomitant]
     Active Substance: ALLOPURINOL
  8. OMNIPAQUE [Suspect]
     Active Substance: IOHEXOL
     Indication: PRODUCT USED FOR UNKNOWN INDICATION
     Route: 042
     Dates: start: 20070323, end: 20070323
  9. ART50 [Concomitant]
  10. PARIET [Concomitant]
     Active Substance: RABEPRAZOLE SODIUM

REACTIONS (3)
  - Hypotension [Recovered/Resolved]
  - Erythema [Recovered/Resolved]
  - Pruritus [Recovered/Resolved]

NARRATIVE: CASE EVENT DATE: 20070323
